FAERS Safety Report 4947672-0 (Version None)
Quarter: 2006Q1

REPORT INFORMATION
  Report Type: 
  Country: None (occurrence: None)
  Receive Date: 20060310
  Receipt Date: 20060302
  Transmission Date: 20060701
  Serious: Yes (Death)
  Sender: FDA-Public Use
  Company Number: A044-002-005926

PATIENT
  Age: 75 Year
  Sex: Female
  Weight: 60 kg

DRUGS (5)
  1. ARICEPT [Suspect]
     Indication: DEMENTIA ALZHEIMER'S TYPE
     Dosage: 5 MG 1 IN 1 D ORAL
     Route: 048
     Dates: start: 20050809, end: 20050913
  2. OLANZAPINE [Suspect]
     Indication: DELUSION
     Dosage: 2.5 MG 1 IN 1 D ORAL
     Route: 048
     Dates: start: 20050719, end: 20050913
  3. FOSAMAX [Concomitant]
  4. KODEIN (CODEINE) [Concomitant]
  5. ZOK=KID (SELOKEN COMP) [Concomitant]

REACTIONS (3)
  - DRUG INTERACTION [None]
  - MALAISE [None]
  - SUDDEN DEATH [None]
